FAERS Safety Report 5894236-0 (Version None)
Quarter: 2008Q3

REPORT INFORMATION
  Report Type: 
  Country: None (occurrence: None)
  Receive Date: 20080923
  Receipt Date: 20080304
  Transmission Date: 20090109
  Serious: No
  Sender: FDA-Public Use
  Company Number: US-ASTRAZENECA-2008UW04468

PATIENT
  Age: 88 Year
  Sex: Female
  Weight: 68 kg

DRUGS (5)
  1. SEROQUEL [Suspect]
     Route: 048
  2. FOSAMAX [Concomitant]
  3. CALCIUM SUPPLEMENTS [Concomitant]
  4. PAXIL [Concomitant]
  5. VICODIN [Concomitant]

REACTIONS (4)
  - APHASIA [None]
  - DISORIENTATION [None]
  - FEEDING DISORDER [None]
  - GAIT DISTURBANCE [None]
